FAERS Safety Report 8936754 (Version 1)
Quarter: 2012Q4

REPORT INFORMATION
  Report Type: Report from Study
  Country: FR (occurrence: FR)
  Receive Date: 20121130
  Receipt Date: 20121130
  Transmission Date: 20130627
  Serious: Yes (Hospitalization)
  Sender: FDA-Public Use
  Company Number: FR-ABBOTT-12P-056-1013383-00

PATIENT
  Age: 30 Year
  Sex: Female
  Weight: 69 kg

DRUGS (4)
  1. KALETRA TABLETS 200/50 [Suspect]
     Indication: HIV INFECTION
     Route: 048
     Dates: start: 20090716, end: 20091009
  2. LAMIVUDINE + ZIDOVUDINE [Concomitant]
     Indication: HIV INFECTION
     Dates: start: 20090620, end: 20091009
  3. SAQUINAVIR [Concomitant]
     Indication: HIV INFECTION
     Dates: start: 20090716, end: 20091009
  4. DOMPERIDONE [Concomitant]
     Indication: VOMITING
     Dates: start: 20090720, end: 20091009

REACTIONS (1)
  - Oligohydramnios [Recovered/Resolved]
